FAERS Safety Report 23680968 (Version 1)
Quarter: 2024Q1

REPORT INFORMATION
  Report Type: Spontaneous
  Country: FR (occurrence: None)
  Receive Date: 20240328
  Receipt Date: 20240328
  Transmission Date: 20240410
  Serious: Yes (Hospitalization)
  Sender: FDA-Public Use
  Company Number: None

PATIENT
  Age: 8 Year
  Sex: Male
  Weight: 26 kg

DRUGS (2)
  1. CELLCEPT [Suspect]
     Active Substance: MYCOPHENOLATE MOFETIL
     Indication: Congenital nephrotic syndrome
     Route: 065
     Dates: start: 20240221
  2. VARILRIX [Suspect]
     Active Substance: VARICELLA-ZOSTER VIRUS STRAIN OKA/MERCK LIVE ANTIGEN
     Indication: Product used for unknown indication
     Route: 065
     Dates: start: 20240227, end: 20240227

REACTIONS (3)
  - Drug interaction [Unknown]
  - Contraindicated product administered [Unknown]
  - Product administration error [Unknown]

NARRATIVE: CASE EVENT DATE: 20240227
